FAERS Safety Report 5487079-3 (Version None)
Quarter: 2007Q3

REPORT INFORMATION
  Report Type: 
  Country: None (occurrence: None)
  Receive Date: 20070925
  Receipt Date: 20070625
  Transmission Date: 20080115
  Serious: No
  Sender: FDA-Public Use
  Company Number: 2007US001284

PATIENT
  Age: 84 Year
  Sex: Male

DRUGS (12)
  1. VESICARE [Suspect]
     Indication: MICTURITION URGENCY
     Dosage: 5 MG, BID,
     Dates: start: 20070419, end: 20070529
  2. MULTIVITAMIN AND MINERAL(ASCORBIC ACID, CYANOCOBALAMIN, FERROUS FUMARA [Suspect]
     Indication: DRUG USE FOR UNKNOWN INDICATION
  3. LASIX [Concomitant]
  4. POTASSIUM CHLORIDE [Concomitant]
  5. PAXIL [Concomitant]
  6. LISINOPRIL (LISINOPRIL DIHYDRATE) [Concomitant]
  7. NAMENDA [Concomitant]
  8. SINEMET (CARBIDOPA) [Concomitant]
  9. SLOW-FE (FERROUS SULFATE) [Concomitant]
  10. FOLIC ACID [Concomitant]
  11. CALCIUM (CALCIUM) [Concomitant]
  12. ASPIRIN [Concomitant]

REACTIONS (2)
  - CONSTIPATION [None]
  - DIARRHOEA [None]
